FAERS Safety Report 6623491-4 (Version None)
Quarter: 2010Q1

REPORT INFORMATION
  Report Type: 
  Country: None (occurrence: None)
  Receive Date: 20100305
  Receipt Date: 20100224
  Transmission Date: 20100710
  Serious: Yes (Hospitalization, Other)
  Sender: FDA-Public Use
  Company Number: WAES 1002USA00910

PATIENT
  Age: 65 Year
  Sex: Male

DRUGS (1)
  1. COZAAR [Suspect]
     Indication: HYPERTENSION
     Dosage: 25 MG.DAILY
     Route: 048
     Dates: start: 20070529

REACTIONS (2)
  - ALBUMIN URINE PRESENT [None]
  - PNEUMONIA LEGIONELLA [None]
